FAERS Safety Report 25616214 (Version 2)
Quarter: 2025Q3

REPORT INFORMATION
  Report Type: Spontaneous
  Country: EU (occurrence: EU)
  Receive Date: 20250729
  Receipt Date: 20250829
  Transmission Date: 20251020
  Serious: Yes (Other)
  Sender: INDOCO REMEDIES LIMITED
  Company Number: EU-TEVA-VS-3338423

PATIENT
  Age: 70 Year
  Sex: Male

DRUGS (10)
  1. GLIMEPIRIDE [Suspect]
     Active Substance: GLIMEPIRIDE
     Indication: Diabetes mellitus
     Dosage: 3 MG ONCE DAILY FOR 15 YEARS
     Route: 065
     Dates: start: 2009
  2. HYDROCHLOROTHIAZIDE\LOSARTAN POTASSIUM [Suspect]
     Active Substance: HYDROCHLOROTHIAZIDE\LOSARTAN POTASSIUM
     Indication: Hypertension
     Dosage: 1 {DF} ONCE DAILY (50/12.5 MG ONCE DAILY IN THE MORNING FOR OVER 10 YEARS)
     Route: 065
     Dates: start: 2014
  3. NIFEDIPINE [Suspect]
     Active Substance: NIFEDIPINE
     Indication: Hypertension
     Dosage: 20 MG TWICE DAILY (ONCE IN THE MORNING AND ONCE IN THE EVENING FOR OVER 10 YEARS)
     Route: 065
     Dates: start: 2014
  4. MOXONIDINE [Suspect]
     Active Substance: MOXONIDINE
     Indication: Hypertension
     Dosage: 0.2 MG TWICE DAILY (ONCE IN THE MORNING AND ONCE IN THE EVENING FOR OVER 5 YEARS)
     Route: 065
     Dates: start: 2019
  5. METOPROLOL TARTRATE [Suspect]
     Active Substance: METOPROLOL TARTRATE
     Indication: Hypertension
     Dosage: 50 MG HALF A TABLET ONCE DAILY FOR THE PAST 3 YEARS
     Route: 065
     Dates: start: 2021
  6. METFORMIN HYDROCHLORIDE [Suspect]
     Active Substance: METFORMIN HYDROCHLORIDE
     Indication: Diabetes mellitus
     Dosage: 850 MG THREE TIMES A DAY
     Route: 065
     Dates: start: 2009
  7. PENTOXIFYLLINE [Concomitant]
     Active Substance: PENTOXIFYLLINE
     Indication: Product used for unknown indication
     Dosage: 400 MG ADMINISTERED FOR 20 YEARS
     Route: 065
     Dates: start: 2004
  8. THIOCTIC ACID [Concomitant]
     Active Substance: THIOCTIC ACID
     Indication: Product used for unknown indication
     Dosage: 600 MG ADMINISTERED FOR 20 YEARS
     Route: 065
     Dates: start: 2004
  9. LIDOCAINE [Concomitant]
     Active Substance: LIDOCAINE
     Route: 065
  10. METAMIZOLE SODIUM [Concomitant]
     Active Substance: METAMIZOLE SODIUM
     Indication: Product used for unknown indication
     Route: 065

REACTIONS (3)
  - Skin squamous cell carcinoma recurrent [Unknown]
  - Basal cell carcinoma [Unknown]
  - Suspected product contamination [Unknown]

NARRATIVE: CASE EVENT DATE: 20200101
